FAERS Safety Report 12201751 (Version 1)
Quarter: 2016Q1

REPORT INFORMATION
  Report Type: Spontaneous
  Country: US (occurrence: US)
  Receive Date: 20160322
  Receipt Date: 20160322
  Transmission Date: 20160526
  Serious: No
  Sender: FDA-Public Use
  Company Number: US-SA-2016SA026933

PATIENT
  Age: 45 Year
  Sex: Female

DRUGS (3)
  1. NASACORT ALLERGY 24HR [Suspect]
     Active Substance: TRIAMCINOLONE ACETONIDE
     Indication: NASAL CONGESTION
     Dosage: PRODUCT START DATE: ABOUT 2 WEEKS AGO; DOSE: 1 PUFF IEN
     Route: 065
     Dates: end: 20160131
  2. DOXYCYCLINE. [Concomitant]
     Active Substance: DOXYCYCLINE
     Route: 065
  3. NASACORT ALLERGY 24HR [Suspect]
     Active Substance: TRIAMCINOLONE ACETONIDE
     Indication: SINUSITIS
     Dosage: PRODUCT START DATE: ABOUT 2 WEEKS AGO; DOSE: 1 PUFF IEN
     Route: 065
     Dates: end: 20160131

REACTIONS (7)
  - Ocular discomfort [Recovering/Resolving]
  - Ocular hyperaemia [Recovering/Resolving]
  - Swelling face [Recovering/Resolving]
  - Mobility decreased [Recovering/Resolving]
  - Eye pain [Recovering/Resolving]
  - Limb discomfort [Recovering/Resolving]
  - Muscular weakness [Recovering/Resolving]
